FAERS Safety Report 5469192-X (Version None)
Quarter: 2007Q3

REPORT INFORMATION
  Report Type: 
  Country: None (occurrence: None)
  Receive Date: 20070927
  Receipt Date: 20070918
  Transmission Date: 20080115
  Serious: Yes (Hospitalization)
  Sender: FDA-Public Use
  Company Number: JP-ABBOTT-07P-087-0376791-00

PATIENT
  Sex: Female

DRUGS (5)
  1. KLARICID [Suspect]
     Indication: BRONCHITIS
     Route: 048
     Dates: start: 20070720, end: 20070723
  2. PARACETAMOL [Concomitant]
     Indication: PYREXIA
     Route: 048
     Dates: start: 20070720, end: 20070723
  3. COMBINATION COLD REMEDY (PL) [Concomitant]
     Indication: RHINORRHOEA
     Route: 048
     Dates: start: 20070720, end: 20070723
  4. LYSOZYME HYDROCHLORIDE [Concomitant]
     Indication: DRUG USE FOR UNKNOWN INDICATION
     Route: 048
     Dates: start: 20070720, end: 20070723
  5. EPIRIZOLE [Concomitant]
     Indication: DRUG USE FOR UNKNOWN INDICATION
     Route: 048
     Dates: start: 20070720, end: 20070723

REACTIONS (2)
  - DYSPNOEA [None]
  - RASH [None]
